FAERS Safety Report 21736049 (Version 1)
Quarter: 2022Q4

REPORT INFORMATION
  Report Type: Spontaneous
  Country: US (occurrence: US)
  Receive Date: 20221215
  Receipt Date: 20221215
  Transmission Date: 20230113
  Serious: Yes (Other)
  Sender: FDA-Public Use
  Company Number: US-NOVOPROD-873238

PATIENT
  Age: 80 Year
  Sex: Male

DRUGS (5)
  1. LEVEMIR [Suspect]
     Active Substance: INSULIN DETEMIR
     Dosage: 22 NITS
     Route: 058
  2. LEVEMIR [Suspect]
     Active Substance: INSULIN DETEMIR
     Dosage: 24 UNITS
     Route: 058
  3. LEVEMIR [Suspect]
     Active Substance: INSULIN DETEMIR
     Indication: Type 2 diabetes mellitus
     Dosage: 18-20 UNITS DAILY
     Route: 058
     Dates: start: 2021
  4. LEVEMIR [Suspect]
     Active Substance: INSULIN DETEMIR
     Dosage: 28 UNITS
     Route: 058
  5. NOVOLOG [Concomitant]
     Active Substance: INSULIN ASPART
     Indication: Product used for unknown indication
     Dosage: 3-4X PER DAY BETWEEN 8-12 UNITS (SLIDING SCALE)
     Route: 065

REACTIONS (6)
  - Hypoglycaemic unconsciousness [Recovered/Resolved]
  - Blood glucose fluctuation [Not Recovered/Not Resolved]
  - Feeling abnormal [Unknown]
  - Product quality issue [Not Recovered/Not Resolved]
  - Drug ineffective [Not Recovered/Not Resolved]
  - Product use complaint [Unknown]

NARRATIVE: CASE EVENT DATE: 20211101
